FAERS Safety Report 23704116 (Version 3)
Quarter: 2024Q3

REPORT INFORMATION
  Report Type: Spontaneous
  Country: US (occurrence: US)
  Receive Date: 20240403
  Receipt Date: 20240720
  Transmission Date: 20241016
  Serious: No
  Sender: NOVARTIS
  Company Number: US-002147023-NVSC2024US071322

PATIENT
  Sex: Female
  Weight: 67.13 kg

DRUGS (1)
  1. COSENTYX [Suspect]
     Active Substance: SECUKINUMAB
     Indication: Psoriatic arthropathy
     Dosage: 2 MG, QMO, 2025 MAY SJWU4 SN: 10552706529579
     Route: 058
     Dates: start: 20240305

REACTIONS (1)
  - Accidental exposure to product [Unknown]
